FAERS Safety Report 21470280 (Version 1)
Quarter: 2022Q4

REPORT INFORMATION
  Report Type: Spontaneous
  Country: FR (occurrence: FR)
  Receive Date: 20221018
  Receipt Date: 20221018
  Transmission Date: 20230113
  Serious: Yes (Death, Other)
  Sender: FDA-Public Use
  Company Number: FR-SUN PHARMACEUTICAL INDUSTRIES LTD-2022R1-359328

PATIENT
  Weight: .665 kg

DRUGS (2)
  1. CLOBETASOL [Suspect]
     Active Substance: CLOBETASOL
     Indication: Herpes gestationis
     Dosage: 30 GRAM, DAILY
     Route: 064
  2. PREDNISONE [Suspect]
     Active Substance: PREDNISONE
     Indication: Herpes gestationis
     Dosage: 0.75 MILLIGRAM/KILOGRAM
     Route: 064

REACTIONS (4)
  - Sepsis [Fatal]
  - Premature baby [Unknown]
  - Foetal growth restriction [Unknown]
  - Foetal exposure during pregnancy [Unknown]
